FAERS Safety Report 23362022 (Version 1)
Quarter: 2024Q1

REPORT INFORMATION
  Report Type: Spontaneous
  Country: US (occurrence: None)
  Receive Date: 20240102
  Receipt Date: 20240102
  Transmission Date: 20240409
  Serious: Yes (Hospitalization)
  Sender: FDA-Public Use
  Company Number: None

PATIENT
  Age: 83 Year
  Sex: Female

DRUGS (1)
  1. LENALIDOMIDE [Suspect]
     Active Substance: LENALIDOMIDE
     Indication: B-cell lymphoma
     Dosage: 25MG ONCE DAILY BY MOUTH?
     Route: 048
     Dates: start: 202306

REACTIONS (2)
  - Therapy interrupted [None]
  - Blood loss anaemia [None]

NARRATIVE: CASE EVENT DATE: 20231229
